FAERS Safety Report 8265024-5 (Version None)
Quarter: 2012Q2

REPORT INFORMATION
  Report Type: 
  Country: None (occurrence: None)
  Receive Date: 20120406
  Receipt Date: 20120402
  Transmission Date: 20120825
  Serious: Yes (Other)
  Sender: FDA-Public Use
  Company Number: PHEH2012US005923

PATIENT
  Sex: Female

DRUGS (12)
  1. PREVACID [Concomitant]
     Dosage: 30 MG, BID
  2. TRIAMTERENE AND HYDROCHLOROTHIAZID [Concomitant]
     Dosage: 1 DF (37.5MG/25MG), QD
  3. FISH OIL [Concomitant]
  4. RECLAST [Suspect]
     Dosage: UNK UKN, YEARLY
     Route: 042
  5. CALCIUM CARBONATE [Concomitant]
  6. CRESTOR [Concomitant]
     Dosage: 5 MG, QD
  7. DICYCLOMINE [Concomitant]
     Dosage: 10 MG, QD
  8. SYNTHROID [Concomitant]
     Dosage: 150 UG, QD
  9. DILTIAZEM HCL [Concomitant]
     Dosage: 180 MG, BID
  10. CITRUCEL [Concomitant]
  11. DIOVAN [Concomitant]
     Dosage: 160 MG, QD
  12. MULTIVITAMIN [Concomitant]

REACTIONS (10)
  - PAIN IN EXTREMITY [None]
  - GAIT DISTURBANCE [None]
  - MOBILITY DECREASED [None]
  - DEHYDRATION [None]
  - ASTHENIA [None]
  - FOOT FRACTURE [None]
  - URINARY TRACT INFECTION [None]
  - FATIGUE [None]
  - MUSCLE SPASMS [None]
  - FALL [None]
